FAERS Safety Report 8029719-0 (Version None)
Quarter: 2012Q1

REPORT INFORMATION
  Report Type: 
  Country: None (occurrence: None)
  Receive Date: 20120104
  Receipt Date: 20111229
  Transmission Date: 20120608
  Serious: Yes (Disabling, Other)
  Sender: FDA-Public Use
  Company Number: 2009-200158-NL

PATIENT
  Age: 32 Year
  Sex: Female
  Weight: 95.2554 kg

DRUGS (15)
  1. ERYTHROMYCIN [Concomitant]
  2. NUVARING [Suspect]
     Indication: CONTRACEPTION
  3. DROSPIRENONE AND ETHINYL ESTRADIOL [Suspect]
     Indication: PRODUCT USED FOR UNKNOWN INDICATION
  4. AMITRIPTYLINE HCL [Concomitant]
  5. MOMETASONE FUROATE [Concomitant]
  6. AZELASTINE HCL [Concomitant]
  7. ACETAMINOPHEN [Concomitant]
  8. FIORICET [Concomitant]
  9. HYDROCODONE BITARTRATE AND ACETAMINOPHEN [Concomitant]
  10. FROVE [Concomitant]
  11. PROPRANOLOL HYDROCHLORIDE [Concomitant]
  12. ELETRIPTAN HYDROBROMIDE [Concomitant]
  13. NAPROXEN [Concomitant]
  14. MAXALT [Concomitant]
  15. SERTRALINE HYDROCHLORIDE [Concomitant]

REACTIONS (26)
  - JAUNDICE [None]
  - ARTHRALGIA [None]
  - DIZZINESS [None]
  - MUSCULOSKELETAL PAIN [None]
  - EAR PAIN [None]
  - POST-TRAUMATIC PAIN [None]
  - OEDEMA PERIPHERAL [None]
  - MULTIPLE ALLERGIES [None]
  - LARYNGITIS [None]
  - PAIN IN EXTREMITY [None]
  - NAUSEA [None]
  - HEART RATE IRREGULAR [None]
  - MIGRAINE [None]
  - PALPITATIONS [None]
  - PHOTOPHOBIA [None]
  - ARRHYTHMIA [None]
  - DYSPNOEA [None]
  - CHEST PAIN [None]
  - LIVER DISORDER [None]
  - CROHN'S DISEASE [None]
  - OROPHARYNGEAL PAIN [None]
  - INTERVERTEBRAL DISC PROTRUSION [None]
  - APHONIA [None]
  - BODY TEMPERATURE INCREASED [None]
  - BRAIN NEOPLASM [None]
  - INTERVERTEBRAL DISC DEGENERATION [None]
